FAERS Safety Report 7525540-8 (Version None)
Quarter: 2011Q2

REPORT INFORMATION
  Report Type: 
  Country: None (occurrence: None)
  Receive Date: 20110606
  Receipt Date: 20110525
  Transmission Date: 20111010
  Serious: Yes (Hospitalization)
  Sender: FDA-Public Use
  Company Number: JP-ROCHE-780492

PATIENT
  Age: 9 Year
  Sex: Female

DRUGS (1)
  1. NAPROXEN [Suspect]
     Indication: JUVENILE ARTHRITIS
     Route: 048

REACTIONS (1)
  - HISTIOCYTOSIS HAEMATOPHAGIC [None]
